FAERS Safety Report 10019140 (Version 4)
Quarter: 2014Q2

REPORT INFORMATION
  Report Type: Spontaneous
  Country: US (occurrence: US)
  Receive Date: 20140318
  Receipt Date: 20140502
  Transmission Date: 20141212
  Serious: No
  Sender: FDA-Public Use
  Company Number: US-PFIZER INC-2014049155

PATIENT
  Age: 5 Year
  Sex: Female

DRUGS (1)
  1. QUILLIVANT XR [Suspect]
     Indication: ATTENTION DEFICIT/HYPERACTIVITY DISORDER
     Dosage: UNK
     Dates: start: 201401, end: 2014

REACTIONS (2)
  - Attention deficit/hyperactivity disorder [Unknown]
  - Off label use [Recovered/Resolved]
